FAERS Safety Report 7688095-3 (Version None)
Quarter: 2011Q3

REPORT INFORMATION
  Report Type: 
  Country: None (occurrence: None)
  Receive Date: 20110817
  Receipt Date: 20110803
  Transmission Date: 20111222
  Serious: No
  Sender: FDA-Public Use
  Company Number: US-B.I. PHARMACEUTICALS,INC./RIDGEFIELD-2011-BP-19159BP

PATIENT
  Sex: Male

DRUGS (10)
  1. CARVEDILOL [Concomitant]
     Indication: HYPERTENSION
     Dosage: 2.5 MG
     Route: 048
     Dates: start: 20060101
  2. AMLODIPINE [Concomitant]
     Indication: HYPERTENSION
     Route: 048
     Dates: start: 20060101
  3. SPIRONOLACTONE [Concomitant]
     Indication: OEDEMA
     Dosage: 25 MG
     Route: 048
     Dates: start: 20070101
  4. PRADAXA [Suspect]
     Indication: ATRIAL FIBRILLATION
     Dosage: 300 MG
     Route: 048
     Dates: start: 20110301
  5. TRICOR [Concomitant]
     Indication: BLOOD CHOLESTEROL INCREASED
     Dosage: 140 MG
     Route: 048
     Dates: start: 20060101
  6. MULTAQ [Concomitant]
     Indication: ATRIAL FIBRILLATION
     Dosage: 400 MG
     Route: 048
     Dates: start: 20110201
  7. NAPROXEN [Concomitant]
     Indication: BACK PAIN
     Dates: start: 20090101
  8. CRESTOR [Concomitant]
     Indication: BLOOD CHOLESTEROL INCREASED
     Dosage: 10 MG
     Route: 048
     Dates: start: 20020101
  9. METFORMIN HCL [Concomitant]
     Indication: TYPE 2 DIABETES MELLITUS
     Dosage: 500 MG
     Route: 048
     Dates: start: 20020101
  10. CHLORTHALIDONE [Concomitant]
     Indication: OEDEMA
     Dates: start: 20020101

REACTIONS (2)
  - FATIGUE [None]
  - SOMNOLENCE [None]
